FAERS Safety Report 18667696 (Version 1)
Quarter: 2020Q4

REPORT INFORMATION
  Report Type: Spontaneous
  Country: US (occurrence: US)
  Receive Date: 20201228
  Receipt Date: 20201228
  Transmission Date: 20210114
  Serious: No
  Sender: FDA-Public Use
  Company Number: US-SPECGX-T201909210

PATIENT
  Age: 55 Year
  Sex: Male

DRUGS (4)
  1. CHLORTHALIDONE. [Concomitant]
     Active Substance: CHLORTHALIDONE
     Indication: BLOOD PRESSURE ABNORMAL
  2. DIOVAN [Concomitant]
     Active Substance: VALSARTAN
  3. FENTANYL TRANSDERMAL SYSTEM [Suspect]
     Active Substance: FENTANYL
     Indication: PAIN
     Dosage: ONE PATCH, EVERY THREE DAYS
     Route: 062
     Dates: start: 201905, end: 2019
  4. FENTANYL TRANSDERMAL SYSTEM [Suspect]
     Active Substance: FENTANYL
     Dosage: ONE PATCH, EVERY THREE DAYS
     Route: 062
     Dates: start: 201912

REACTIONS (3)
  - Fatigue [Recovered/Resolved]
  - Device leakage [Unknown]
  - Lethargy [Recovered/Resolved]

NARRATIVE: CASE EVENT DATE: 201912
